FAERS Safety Report 9414153 (Version 1)
Quarter: 2013Q3

REPORT INFORMATION
  Report Type: Spontaneous
  Country: JP (occurrence: JP)
  Receive Date: 20130723
  Receipt Date: 20130723
  Transmission Date: 20140515
  Serious: Yes (Other)
  Sender: FDA-Public Use
  Company Number: JP-BRISTOL-MYERS SQUIBB COMPANY-19131531

PATIENT
  Sex: 0

DRUGS (1)
  1. ERBITUX SOLN FOR INF 5MG/ML [Suspect]
     Indication: HEAD AND NECK CANCER
     Dosage: 8 INFUSION
     Route: 041

REACTIONS (1)
  - Osteoradionecrosis [Unknown]
